FAERS Safety Report 22336407 (Version 1)
Quarter: 2023Q2

REPORT INFORMATION
  Report Type: Spontaneous
  Country: US (occurrence: None)
  Receive Date: 20230518
  Receipt Date: 20230518
  Transmission Date: 20230721
  Serious: No
  Sender: FDA-Public Use
  Company Number: US-ROCHE-3166319

PATIENT
  Age: 63 Year
  Sex: Female
  Weight: 93.07 kg

DRUGS (11)
  1. ACTEMRA [Suspect]
     Active Substance: TOCILIZUMAB
     Indication: Rheumatoid arthritis
     Dosage: ROUTE PROVIDED AS ^ INFUSION^ : ONGOING: NO, STRENGTH:162 MG/0.9 ML
     Route: 058
     Dates: start: 202206
  2. ACTEMRA [Suspect]
     Active Substance: TOCILIZUMAB
  3. ACTEMRA [Suspect]
     Active Substance: TOCILIZUMAB
  4. ACTEMRA [Suspect]
     Active Substance: TOCILIZUMAB
     Dosage: ONGOING: YES
     Route: 058
     Dates: start: 20220701
  5. ACTEMRA [Suspect]
     Active Substance: TOCILIZUMAB
  6. ACTEMRA [Suspect]
     Active Substance: TOCILIZUMAB
  7. ACTEMRA [Suspect]
     Active Substance: TOCILIZUMAB
     Indication: Rheumatoid arthritis
     Dosage: ROUTE PROVIDED AS ^ INFUSION^, ONGOING: NO
     Route: 042
     Dates: start: 202105, end: 202206
  8. AMLODIPINE [Concomitant]
     Active Substance: AMLODIPINE BESYLATE
     Indication: Arteriosclerosis
     Route: 048
     Dates: start: 202007
  9. ATORVASTATIN [Concomitant]
     Active Substance: ATORVASTATIN
     Indication: Blood cholesterol increased
     Route: 048
     Dates: start: 202007
  10. NITROGLYCERIN [Concomitant]
     Active Substance: NITROGLYCERIN
  11. ALEVE [Concomitant]
     Active Substance: NAPROXEN SODIUM
     Indication: Pain
     Dosage: ONGOING
     Route: 048

REACTIONS (8)
  - COVID-19 [Recovered/Resolved with Sequelae]
  - Incorrect dose administered [Unknown]
  - Exposure via skin contact [Unknown]
  - Dyspnoea [Not Recovered/Not Resolved]
  - Syringe issue [Unknown]
  - Device issue [Unknown]
  - Wrong technique in product usage process [Unknown]
  - Poor quality product administered [Unknown]

NARRATIVE: CASE EVENT DATE: 20220701
